FAERS Safety Report 4284734-8 (Version None)
Quarter: 2004Q1

REPORT INFORMATION
  Report Type: 
  Country: None (occurrence: None)
  Receive Date: 20040202
  Receipt Date: 20040112
  Transmission Date: 20041129
  Serious: Yes (Hospitalization)
  Sender: FDA-Public Use
  Company Number: 12475323

PATIENT
  Age: 34 Year
  Sex: Female

DRUGS (4)
  1. REVIA [Suspect]
     Indication: ALCOHOL WITHDRAWAL SYNDROME
     Dosage: 50 MILLIGRAM 1/1 DAY
     Route: 048
     Dates: start: 20031106, end: 20031106
  2. SUBUTEX [Suspect]
     Dosage: 8 MILLIGRAM 1 DAY
     Route: 048
  3. AOTAL        (ACAMPROSATE) [Concomitant]
  4. LEXOMIL         (BROMAZEPAM) [Concomitant]

REACTIONS (6)
  - AGITATION [None]
  - ANXIETY [None]
  - DRUG INTERACTION [None]
  - DRUG WITHDRAWAL SYNDROME [None]
  - HYPERHIDROSIS [None]
  - MUSCLE CRAMP [None]
